FAERS Safety Report 23522384 (Version 1)
Quarter: 2024Q1

REPORT INFORMATION
  Report Type: Spontaneous
  Country: US (occurrence: None)
  Receive Date: 20240213
  Receipt Date: 20240213
  Transmission Date: 20240409
  Serious: Yes (Death)
  Sender: FDA-Public Use
  Company Number: None

PATIENT
  Age: 63 Year
  Sex: Female

DRUGS (1)
  1. POMALYST [Suspect]
     Active Substance: POMALIDOMIDE
     Indication: Plasma cell myeloma
     Dosage: FREQUENCY : DAILY;?
     Route: 048
     Dates: start: 20231122, end: 20240203

REACTIONS (5)
  - Dyspnoea [None]
  - Anaemia [None]
  - Thrombocytopenia [None]
  - Hospice care [None]
  - Pleural effusion [None]

NARRATIVE: CASE EVENT DATE: 20240203
